FAERS Safety Report 8535624-3 (Version None)
Quarter: 2012Q3

REPORT INFORMATION
  Report Type: 
  Country: None (occurrence: None)
  Receive Date: 20120725
  Receipt Date: 20120720
  Transmission Date: 20120928
  Serious: No
  Sender: FDA-Public Use
  Company Number: US-PFIZER INC-2012176297

PATIENT
  Sex: Female
  Weight: 77.098 kg

DRUGS (14)
  1. POTASSIUM CHLORIDE [Concomitant]
     Indication: MYOCARDIAL INFARCTION
  2. TRAMADOL [Concomitant]
     Indication: PAIN
     Dosage: 100 MG, DAILY
  3. LISINOPRIL [Concomitant]
     Indication: CARDIAC DISORDER
     Dosage: 5 MG, DAILY
  4. ISOSORBIDE [Concomitant]
     Indication: CARDIAC DISORDER
     Dosage: 30 MG, DAILY
  5. WARFARIN [Concomitant]
     Indication: ANTICOAGULANT THERAPY
     Dosage: UNK,DAILY
  6. LEVOTHYROXINE [Concomitant]
     Indication: THYROID DISORDER
     Dosage: 100 UG, DAILY
  7. POTASSIUM CHLORIDE [Concomitant]
     Indication: CARDIAC DISORDER
     Dosage: 20 MG, DAILY
  8. AMITRIPTYLINE [Concomitant]
     Indication: SLEEP DISORDER
     Dosage: 30 MG, DAILY
  9. CLOPIDOGREL [Concomitant]
     Indication: ANTICOAGULANT THERAPY
     Dosage: 75 MG, DAILY
  10. DIGOXIN [Concomitant]
     Indication: CARDIAC DISORDER
     Dosage: UNK,DAILY
  11. LYRICA [Suspect]
     Indication: NEUROPATHY PERIPHERAL
     Dosage: 75 MG, 3X/DAY
     Route: 048
  12. TRAMADOL [Concomitant]
     Indication: SLEEP DISORDER
  13. AMLODIPINE [Concomitant]
     Indication: CARDIAC DISORDER
     Dosage: 5 MG, DAILY
  14. SIMVASTATIN [Concomitant]
     Indication: CARDIAC DISORDER
     Dosage: 30 MG, DAILY

REACTIONS (1)
  - OEDEMA PERIPHERAL [None]
